FAERS Safety Report 9744206 (Version 1)
Quarter: 2013Q4

REPORT INFORMATION
  Report Type: Spontaneous
  Country: US (occurrence: US)
  Receive Date: 20131210
  Receipt Date: 20131210
  Transmission Date: 20140711
  Serious: No
  Sender: FDA-Public Use
  Company Number: US-BIOGENIDEC-2013BI100376

PATIENT
  Age: 55 Year
  Sex: Female

DRUGS (22)
  1. TECFIDERA [Suspect]
     Indication: MULTIPLE SCLEROSIS
     Route: 048
     Dates: start: 201308, end: 201308
  2. TECFIDERA [Suspect]
     Indication: MULTIPLE SCLEROSIS
     Route: 048
     Dates: start: 201308
  3. EFFEXOR [Concomitant]
  4. PROTONIX [Concomitant]
  5. LASIX [Concomitant]
  6. SOTALOL [Concomitant]
  7. TRAMADOL [Concomitant]
  8. CITALOPRAM [Concomitant]
  9. ASPIRIN [Concomitant]
  10. SIMVASTATIN [Concomitant]
  11. DIGOXIN [Concomitant]
  12. METRONIDAZOLE [Concomitant]
  13. SULFACETAMIDE [Concomitant]
  14. BACLOFEN [Concomitant]
  15. NALTREXONE [Concomitant]
  16. SEROQUEL [Concomitant]
  17. TYLENOL [Concomitant]
  18. MECLIZINE [Concomitant]
  19. AMANTADINE [Concomitant]
  20. VITAMIN D-3 [Concomitant]
  21. VITAMIN B-12 [Concomitant]
  22. SULFACLEANSE [Concomitant]

REACTIONS (4)
  - Flatulence [Not Recovered/Not Resolved]
  - Abdominal pain [Not Recovered/Not Resolved]
  - Diarrhoea [Not Recovered/Not Resolved]
  - Flushing [Not Recovered/Not Resolved]
